FAERS Safety Report 5114679-2 (Version None)
Quarter: 2006Q3

REPORT INFORMATION
  Report Type: 
  Country: None (occurrence: None)
  Receive Date: 20060926
  Receipt Date: 20060914
  Transmission Date: 20061208
  Serious: Yes (Death, Other)
  Sender: FDA-Public Use
  Company Number: US-JNJFOC-20050201709

PATIENT
  Sex: Female

DRUGS (10)
  1. REMICADE [Suspect]
     Indication: RHEUMATOID ARTHRITIS
     Route: 042
  2. METHOTREXATE [Concomitant]
  3. PLAQUENIL [Concomitant]
  4. PREDNISONE TAB [Concomitant]
  5. FOSAMAX [Concomitant]
  6. TUMS [Concomitant]
  7. CALTRATE [Concomitant]
  8. GLUCOSAMINE/CHONDROITIN [Concomitant]
  9. MULTI-VITAMIN [Concomitant]
  10. TYLENOL [Concomitant]

REACTIONS (2)
  - NEOPLASM MALIGNANT [None]
  - UTERINE CANCER [None]
